FAERS Safety Report 8025186-1 (Version None)
Quarter: 2012Q1

REPORT INFORMATION
  Report Type: 
  Country: None (occurrence: None)
  Receive Date: 20120105
  Receipt Date: 20111230
  Transmission Date: 20120608
  Serious: Yes (Hospitalization)
  Sender: FDA-Public Use
  Company Number: IT-GLAXOSMITHKLINE-B0749303A

PATIENT
  Sex: Male
  Weight: 90 kg

DRUGS (5)
  1. SILODOSIN [Concomitant]
     Dosage: 8MG PER DAY
  2. PAROXETINE HYDROCHLORIDE [Suspect]
     Indication: DEPRESSION
     Dosage: 20MG PER DAY
     Route: 048
     Dates: start: 20110829, end: 20110901
  3. OMEPRAZOLE [Concomitant]
  4. QUINAZIDE [Concomitant]
     Dosage: 20MG PER DAY
  5. LORAZEPAM [Concomitant]

REACTIONS (4)
  - VISUAL IMPAIRMENT [None]
  - EYE PAIN [None]
  - HEADACHE [None]
  - PUPILS UNEQUAL [None]
